FAERS Safety Report 10223340 (Version 1)
Quarter: 2014Q2

REPORT INFORMATION
  Report Type: Spontaneous
  Country: US (occurrence: None)
  Receive Date: 20140606
  Receipt Date: 20140606
  Transmission Date: 20141212
  Serious: Yes (Other)
  Sender: FDA-Public Use
  Company Number: None

PATIENT
  Age: 58 Year
  Sex: Male
  Weight: 97.07 kg

DRUGS (3)
  1. LAMICTAL [Suspect]
     Indication: BIPOLAR DISORDER
     Route: 048
  2. POTASSIUM CITRATE [Concomitant]
  3. VOLTAREN GEL [Concomitant]

REACTIONS (7)
  - Ammonia increased [None]
  - Abdominal pain [None]
  - Eating disorder [None]
  - Weight decreased [None]
  - Flank pain [None]
  - Adrenal adenoma [None]
  - Abdominal wall disorder [None]
